FAERS Safety Report 9784750 (Version 1)
Quarter: 2013Q4

REPORT INFORMATION
  Report Type: Report from Study
  Country: BR (occurrence: BR)
  Receive Date: 20131227
  Receipt Date: 20131227
  Transmission Date: 20140711
  Serious: Yes (Other)
  Sender: FDA-Public Use
  Company Number: BR-ROCHE-1326076

PATIENT
  Sex: Female
  Weight: 85 kg

DRUGS (4)
  1. XOLAIR [Suspect]
     Indication: ASTHMA
     Dosage: 1 AMPOULE IN EACH ARM AND 1 AMPOULE IN EACH GLUTEUS
     Route: 065
     Dates: start: 201310
  2. XOLAIR [Suspect]
     Route: 065
  3. BUDESONIDE/FORMOTEROL FUMARATE [Concomitant]
  4. SALBUTAMOL [Concomitant]

REACTIONS (4)
  - Accident [Unknown]
  - Joint dislocation [Unknown]
  - Haemarthrosis [Unknown]
  - Anxiety [Unknown]
